FAERS Safety Report 8178541-3 (Version None)
Quarter: 2012Q1

REPORT INFORMATION
  Report Type: 
  Country: None (occurrence: None)
  Receive Date: 20120301
  Receipt Date: 20120227
  Transmission Date: 20120608
  Serious: Yes (Death)
  Sender: FDA-Public Use
  Company Number: US-GILEAD-2012-0051031

PATIENT
  Sex: Male

DRUGS (3)
  1. REVATIO [Concomitant]
  2. LETAIRIS [Suspect]
     Indication: PULMONARY HYPERTENSION
     Dosage: 5 MG, UNK
     Route: 048
     Dates: end: 20120212
  3. LETAIRIS [Suspect]
     Indication: SCLERODERMA

REACTIONS (2)
  - CARDIAC FAILURE CONGESTIVE [None]
  - RESPIRATORY FAILURE [None]
